FAERS Safety Report 6142249-6 (Version None)
Quarter: 2009Q2

REPORT INFORMATION
  Report Type: 
  Country: None (occurrence: None)
  Receive Date: 20090401
  Receipt Date: 20090401
  Transmission Date: 20091009
  Serious: Yes (Hospitalization)
  Sender: FDA-Public Use
  Company Number: None

PATIENT
  Age: 70 Year
  Sex: Male

DRUGS (1)
  1. GENTAMYCIN SULFATE [Suspect]
     Dosage: 160 MG BID IV
     Route: 042

REACTIONS (5)
  - ATAXIA [None]
  - BALANCE DISORDER [None]
  - DIABETIC FOOT [None]
  - GAIT DISTURBANCE [None]
  - VESTIBULAR DISORDER [None]
